FAERS Safety Report 5085265-8 (Version None)
Quarter: 2006Q3

REPORT INFORMATION
  Report Type: 
  Country: None (occurrence: None)
  Receive Date: 20060731
  Receipt Date: 20051130
  Transmission Date: 20061208
  Serious: Yes (Other)
  Sender: FDA-Public Use
  Company Number: 200512643BWH

PATIENT
  Age: 53 Year
  Sex: Female

DRUGS (6)
  1. AVELOX [Suspect]
     Indication: SINUSITIS
     Dosage: 400 MG, TOTAL DAILY, ORAL
     Route: 048
     Dates: start: 20040618
  2. ALLEGRA [Suspect]
     Dates: start: 20040618
  3. CELEXA [Concomitant]
  4. CALCIUM GLUCONATE [Concomitant]
  5. GLUCOSAMINE [Concomitant]
  6. SYNVISC [Concomitant]

REACTIONS (4)
  - DIZZINESS [None]
  - DYSPNOEA [None]
  - HYPERSENSITIVITY [None]
  - STRIDOR [None]
